FAERS Safety Report 10541376 (Version 1)
Quarter: 2014Q4

REPORT INFORMATION
  Report Type: Spontaneous
  Country: US (occurrence: None)
  Receive Date: 20141010
  Receipt Date: 20141010
  Transmission Date: 20150529
  Serious: No
  Sender: FDA-Public Use
  Company Number: 163-POMAL-14052741

PATIENT
  Age: 65 Year
  Sex: Male

DRUGS (1)
  1. POMALYST [Suspect]
     Active Substance: POMALIDOMIDE
     Indication: PLASMA CELL MYELOMA
     Route: 048
     Dates: start: 20140110

REACTIONS (6)
  - Arthralgia [None]
  - Fatigue [None]
  - Hyperhidrosis [None]
  - Abdominal discomfort [None]
  - Bone pain [None]
  - Pyrexia [None]

NARRATIVE: CASE EVENT DATE: 20140501
